FAERS Safety Report 4648834-2 (Version None)
Quarter: 2005Q2

REPORT INFORMATION
  Report Type: 
  Country: None (occurrence: None)
  Receive Date: 20050429
  Receipt Date: 20050419
  Transmission Date: 20051028
  Serious: Yes (Disabling)
  Sender: FDA-Public Use
  Company Number: FR-JNJFOC-20050400007

PATIENT
  Age: 42 Year
  Sex: Female
  Weight: 60 kg

DRUGS (9)
  1. DURAGESIC-100 [Suspect]
     Route: 062
  2. DURAGESIC-100 [Suspect]
     Indication: PAIN
     Route: 062
  3. ACTIQ [Suspect]
     Indication: ANKYLOSING SPONDYLITIS
     Route: 049
  4. ACTIQ [Suspect]
     Indication: PAIN
     Dosage: VARIABLE DOSE - 200- 600 UG 2 TO 6 TIMES DAILY
     Route: 049
  5. ENBREL [Concomitant]
     Indication: ANKYLOSING SPONDYLITIS
     Dates: start: 20041101
  6. RIVOTRIL [Concomitant]
     Indication: PAIN
     Dosage: 2 TO 20 DROPS.
     Route: 065
  7. EFFEXOR [Concomitant]
     Indication: PAIN
     Route: 065
  8. PREDNISONE [Concomitant]
     Route: 065
  9. KETOPROFEN [Concomitant]
     Route: 065

REACTIONS (3)
  - DYSPHONIA [None]
  - LARYNGEAL OEDEMA [None]
  - SOMNOLENCE [None]
